FAERS Safety Report 10881947 (Version 1)
Quarter: 2015Q1

REPORT INFORMATION
  Report Type: Spontaneous
  Country: US (occurrence: None)
  Receive Date: 20150225
  Receipt Date: 20150225
  Transmission Date: 20150721
  Serious: No
  Sender: FDA-Public Use
  Company Number: None

PATIENT
  Age: 24 Year
  Sex: Female
  Weight: 65.77 kg

DRUGS (2)
  1. SLEEP ADE [Concomitant]
  2. NEXPLANON [Suspect]
     Active Substance: ETONOGESTREL
     Dosage: EXPIRATION DATE: 05/20/2015

REACTIONS (6)
  - Back pain [None]
  - Anxiety [None]
  - Polymenorrhoea [None]
  - Economic problem [None]
  - Mood swings [None]
  - Insomnia [None]
